FAERS Safety Report 7552728-2 (Version None)
Quarter: 2011Q2

REPORT INFORMATION
  Report Type: 
  Country: None (occurrence: None)
  Receive Date: 20110616
  Receipt Date: 20101013
  Transmission Date: 20111010
  Serious: No
  Sender: FDA-Public Use
  Company Number: US-MYLANLABS-2010S1018996

PATIENT
  Age: 58 Year
  Sex: Female

DRUGS (2)
  1. DOXEPIN HYDROCHLORIDE [Suspect]
     Indication: INSOMNIA
     Route: 048
     Dates: start: 20100924
  2. DOXEPIN HYDROCHLORIDE [Suspect]
     Indication: DEPRESSION
     Route: 048
     Dates: start: 20100924

REACTIONS (2)
  - DRY MOUTH [None]
  - DRY SKIN [None]
